FAERS Safety Report 16830594 (Version 1)
Quarter: 2019Q3

REPORT INFORMATION
  Report Type: Spontaneous
  Country: US (occurrence: US)
  Receive Date: 20190920
  Receipt Date: 20190920
  Transmission Date: 20191005
  Serious: No
  Sender: FDA-Public Use
  Company Number: US-MTPC-MTDA2019-0071264

PATIENT

DRUGS (1)
  1. RADICAVA [Suspect]
     Active Substance: EDARAVONE
     Indication: AMYOTROPHIC LATERAL SCLEROSIS
     Dosage: 60 MG PER 200 ML, 2 IV PIGGYBACK FOR 10 DAYS THEN OFF FOR 14 DAYS
     Route: 042

REACTIONS (1)
  - Product dose omission [Unknown]
